FAERS Safety Report 7441606-5 (Version None)
Quarter: 2011Q2

REPORT INFORMATION
  Report Type: 
  Country: None (occurrence: None)
  Receive Date: 20110428
  Receipt Date: 20110425
  Transmission Date: 20111010
  Serious: No
  Sender: FDA-Public Use
  Company Number: US-PFIZER INC-2011089025

PATIENT
  Sex: Female
  Weight: 45.351 kg

DRUGS (1)
  1. CLEOCIN [Suspect]
     Indication: VAGINAL PH ABNORMAL
     Dosage: 100 MG, DAILY
     Route: 067
     Dates: start: 20110421, end: 20110423

REACTIONS (7)
  - CHILLS [None]
  - HEADACHE [None]
  - ABDOMINAL DISCOMFORT [None]
  - NAUSEA [None]
  - ABDOMINAL PAIN [None]
  - PALPITATIONS [None]
  - FEELING ABNORMAL [None]
